FAERS Safety Report 25830859 (Version 1)
Quarter: 2025Q3

REPORT INFORMATION
  Report Type: Spontaneous
  Country: US (occurrence: None)
  Receive Date: 20250920
  Receipt Date: 20250920
  Transmission Date: 20251021
  Serious: No
  Sender: FDA-CTU
  Company Number: None

PATIENT
  Age: 33 Year
  Sex: Male
  Weight: 72 kg

DRUGS (1)
  1. FINASTERIDE [Suspect]
     Active Substance: FINASTERIDE
     Indication: Alopecia
     Dosage: 1 TABLET(S)  DAILY ORAL
     Route: 048

REACTIONS (7)
  - Anxiety [None]
  - Libido decreased [None]
  - Erectile dysfunction [None]
  - Insomnia [None]
  - Brain fog [None]
  - Muscular dystrophy [None]
  - Amnesia [None]

NARRATIVE: CASE EVENT DATE: 20210131
